FAERS Safety Report 6093457-4 (Version None)
Quarter: 2009Q1

REPORT INFORMATION
  Report Type: 
  Country: None (occurrence: None)
  Receive Date: 20090226
  Receipt Date: 20090219
  Transmission Date: 20090719
  Serious: Yes (Hospitalization, Other)
  Sender: FDA-Public Use
  Company Number: US-AMGEN-QUU334678

PATIENT
  Sex: Female

DRUGS (5)
  1. NEULASTA [Suspect]
     Indication: CHEMOTHERAPY
     Route: 065
     Dates: start: 20030101
  2. AVASTIN [Concomitant]
     Dates: start: 20080901, end: 20081001
  3. FLUORO-URACIL [Concomitant]
     Dates: start: 20030101
  4. LEUCOVORIN CALCIUM [Concomitant]
     Dates: start: 20030101
  5. IRINOTECAN HCL [Concomitant]
     Dates: start: 20030101

REACTIONS (4)
  - BRAIN NEOPLASM [None]
  - CEREBROVASCULAR ACCIDENT [None]
  - COLORECTAL CANCER METASTATIC [None]
  - CONVULSION [None]
